FAERS Safety Report 5693127-8 (Version None)
Quarter: 2008Q2

REPORT INFORMATION
  Report Type: 
  Country: None (occurrence: None)
  Receive Date: 20080402
  Receipt Date: 20080402
  Transmission Date: 20081010
  Serious: Yes (Other)
  Sender: FDA-Public Use
  Company Number: None

PATIENT
  Age: 53 Year
  Sex: Male
  Weight: 145.151 kg

DRUGS (2)
  1. GEODON [Suspect]
     Indication: BIPOLAR DISORDER
     Dosage: 80 MG 2X PER DAY PO
     Route: 048
     Dates: start: 20061002, end: 20080401
  2. SEROQUEL [Suspect]
     Indication: BIPOLAR DISORDER
     Dosage: 50 MG 1 X PER DAY PO
     Route: 048
     Dates: start: 20061002, end: 20080301

REACTIONS (4)
  - NEPHROLITHIASIS [None]
  - PAIN [None]
  - RENAL FAILURE [None]
  - URINARY RETENTION [None]
